FAERS Safety Report 6979686-3 (Version None)
Quarter: 2010Q3

REPORT INFORMATION
  Report Type: 
  Country: None (occurrence: None)
  Receive Date: 20100908
  Receipt Date: 20100827
  Transmission Date: 20110219
  Serious: Yes (Death)
  Sender: FDA-Public Use
  Company Number: 684838

PATIENT
  Age: 52 Year
  Sex: Female
  Weight: 72 kg

DRUGS (14)
  1. (PAMIDRONIC ACID) [Suspect]
     Indication: HYPERCALCAEMIA OF MALIGNANCY
     Dosage: INTRAVENOUS
     Route: 042
     Dates: start: 20100602, end: 20100602
  2. ZOMETA [Suspect]
     Indication: HYPERCALCAEMIA OF MALIGNANCY
     Dosage: 4 MG MILLIGRAM(S), 8 DAY, INTRAVENOUS
     Route: 042
     Dates: start: 20100526, end: 20100604
  3. ACYCLOVIR SODIUM [Concomitant]
  4. BECLOMETHASONE DIPROPIONATE [Concomitant]
  5. DOCUSATE [Concomitant]
  6. FLUOXETINE [Concomitant]
  7. ITRACONAZOLE [Concomitant]
  8. OMEPRAZOLE [Concomitant]
  9. OXYCONTIN [Concomitant]
  10. OXYCODONE HCL [Concomitant]
  11. PARACETAMOL [Concomitant]
  12. SALBUTAMOL [Concomitant]
  13. SENNA [Concomitant]
  14. THALIDOMIDE [Concomitant]

REACTIONS (3)
  - BLOOD CALCIUM INCREASED [None]
  - MALIGNANT NEOPLASM PROGRESSION [None]
  - MULTIPLE MYELOMA [None]
